FAERS Safety Report 19084272 (Version 1)
Quarter: 2021Q2

REPORT INFORMATION
  Report Type: Report from Study
  Country: US (occurrence: US)
  Receive Date: 20210401
  Receipt Date: 20210401
  Transmission Date: 20210717
  Serious: Yes (Disabling, Other)
  Sender: FDA-Public Use
  Company Number: US-BAYER-2021-111183

PATIENT
  Age: 52 Year
  Sex: Female

DRUGS (12)
  1. GADOBUTROL. [Suspect]
     Active Substance: GADOBUTROL
     Indication: INJURY
     Dosage: UNK
  2. GADOBUTROL. [Suspect]
     Active Substance: GADOBUTROL
     Indication: INJURY
     Dosage: UNK
  3. GADOBUTROL. [Suspect]
     Active Substance: GADOBUTROL
     Indication: INJURY
     Dosage: UNK
  4. GADOBUTROL. [Suspect]
     Active Substance: GADOBUTROL
     Indication: INJURY
     Dosage: UNK
  5. GADOBUTROL. [Suspect]
     Active Substance: GADOBUTROL
     Indication: INJURY
     Dosage: UNK
  6. GADOBUTROL. [Suspect]
     Active Substance: GADOBUTROL
     Indication: INJURY
     Dosage: UNK
  7. GADOBUTROL. [Suspect]
     Active Substance: GADOBUTROL
     Indication: INJURY
     Dosage: UNK
  8. GADOBUTROL. [Suspect]
     Active Substance: GADOBUTROL
     Indication: INJURY
  9. GADOBUTROL. [Suspect]
     Active Substance: GADOBUTROL
     Indication: INJURY
     Dosage: UNK
  10. GADOBUTROL. [Suspect]
     Active Substance: GADOBUTROL
     Indication: INJURY
     Dosage: UNK
  11. GADOBUTROL. [Suspect]
     Active Substance: GADOBUTROL
     Indication: ADVERSE EVENT
     Dosage: UNK
  12. GADOBUTROL. [Suspect]
     Active Substance: GADOBUTROL
     Indication: INJURY
     Dosage: UNK

REACTIONS (11)
  - Insomnia [None]
  - Pain in extremity [None]
  - Headache [None]
  - Visual impairment [None]
  - Feeling abnormal [None]
  - Skin disorder [None]
  - Skin burning sensation [None]
  - Muscle contractions involuntary [None]
  - Skin discolouration [None]
  - Gadolinium deposition disease [None]
  - Impaired gastric emptying [None]
